FAERS Safety Report 5584076-4 (Version None)
Quarter: 2008Q1

REPORT INFORMATION
  Report Type: 
  Country: None (occurrence: None)
  Receive Date: 20080108
  Receipt Date: 20071225
  Transmission Date: 20080703
  Serious: Yes (Hospitalization)
  Sender: FDA-Public Use
  Company Number: JP-BAYER-JP-2007-029057

PATIENT
  Age: 30 Year
  Sex: Female

DRUGS (5)
  1. BETASERON [Suspect]
     Indication: RELAPSING-REMITTING MULTIPLE SCLEROSIS
     Dosage: UNIT DOSE: 8 MIU
     Route: 058
     Dates: start: 20011018, end: 20050406
  2. TEGRETOL [Concomitant]
     Indication: MUSCLE SPASMS
     Route: 048
     Dates: start: 19931006
  3. GASTER [Concomitant]
     Indication: PROPHYLAXIS AGAINST GASTROINTESTINAL ULCER
     Route: 048
     Dates: start: 19960907
  4. SELBEX [Concomitant]
     Indication: PROPHYLAXIS AGAINST GASTROINTESTINAL ULCER
     Route: 048
     Dates: start: 19960907
  5. PREDONINE [Concomitant]
     Indication: MULTIPLE SCLEROSIS RELAPSE
     Route: 048
     Dates: start: 20010608

REACTIONS (13)
  - DERMATITIS [None]
  - EXTENSOR PLANTAR RESPONSE [None]
  - HEPATIC FUNCTION ABNORMAL [None]
  - HYPERREFLEXIA [None]
  - HYPOAESTHESIA [None]
  - INJECTION SITE ERYTHEMA [None]
  - LIVER DISORDER [None]
  - MYELOPATHY [None]
  - PANNICULITIS LOBULAR [None]
  - PARAPARESIS [None]
  - SYSTEMIC LUPUS ERYTHEMATOSUS [None]
  - TENDERNESS [None]
  - URINARY INCONTINENCE [None]
